FAERS Safety Report 5592502-X (Version None)
Quarter: 2008Q1

REPORT INFORMATION
  Report Type: 
  Country: None (occurrence: None)
  Receive Date: 20080115
  Receipt Date: 20080103
  Transmission Date: 20080703
  Serious: Yes (Other)
  Sender: FDA-Public Use
  Company Number: US-PFIZER INC-2008001443

PATIENT
  Sex: Female

DRUGS (2)
  1. LYRICA [Suspect]
  2. REBIF [Suspect]
     Indication: MULTIPLE SCLEROSIS
     Route: 058
     Dates: start: 20060910

REACTIONS (6)
  - ASTHENIA [None]
  - BURNING SENSATION [None]
  - LIMB DISCOMFORT [None]
  - NERVOUS SYSTEM DISORDER [None]
  - SPINAL CORD DISORDER [None]
  - WEIGHT INCREASED [None]
